FAERS Safety Report 8786337 (Version 2)
Quarter: 2012Q4

REPORT INFORMATION
  Report Type: 
  Country: US (occurrence: US)
  Receive Date: 20120914
  Receipt Date: 20121206
  Transmission Date: 20130627
  Serious: Yes (Hospitalization)
  Sender: FDA-Public Use
  Company Number: US-VERTEX PHARMACEUTICAL INC.-AE-2012-008307

PATIENT
  Age: 57 Year
  Sex: Male

DRUGS (3)
  1. VX-950 (TELAPREVIR) [Suspect]
     Indication: HEPATITIS C
     Dosage: UNK
     Route: 048
     Dates: start: 20120511, end: 20120807
  2. RIBAVIRIN [Concomitant]
     Indication: HEPATITIS C
     Dosage: UNK
     Dates: start: 20120511, end: 20120817
  3. PEGASYS [Concomitant]
     Indication: HEPATITIS C
     Dosage: UNK
     Dates: start: 20120511, end: 20120817

REACTIONS (5)
  - Oedema [Recovered/Resolved]
  - Rash [Recovered/Resolved]
  - Angioedema [Recovered/Resolved]
  - Fatigue [Not Recovered/Not Resolved]
  - Anorectal discomfort [Not Recovered/Not Resolved]
